FAERS Safety Report 9158130 (Version 1)
Quarter: 2013Q1

REPORT INFORMATION
  Report Type: Spontaneous
  Country: CN (occurrence: None)
  Receive Date: 20130212
  Receipt Date: 20130212
  Transmission Date: 20140127
  Serious: Yes (Hospitalization)
  Sender: FDA-Public Use
  Company Number: VAL_01391_2013

PATIENT
  Age: 50 None
  Sex: Female
  Weight: 50 kg

DRUGS (4)
  1. ROCALTROL [Suspect]
     Indication: OSTEOPOROSIS
     Route: 048
     Dates: start: 2005
  2. CELLCEPT [Suspect]
     Indication: RENAL TRANSPLANT
     Route: 048
     Dates: start: 20040101
  3. TACROLIMUS [Concomitant]
  4. PREDNISONE [Concomitant]

REACTIONS (4)
  - Bladder cancer [None]
  - Benign neoplasm of ureter [None]
  - Renal pain [None]
  - Osteoporosis [None]
